FAERS Safety Report 22980187 (Version 4)
Quarter: 2025Q4

REPORT INFORMATION
  Report Type: Report from Study
  Country: US (occurrence: None)
  Receive Date: 20230925
  Receipt Date: 20251112
  Transmission Date: 20260117
  Serious: Yes (Other)
  Sender: UCB
  Company Number: US-UCBSA-2023041761

PATIENT
  Age: 14 Year
  Weight: 62.6 kg

DRUGS (5)
  1. FENFLURAMINE [Suspect]
     Active Substance: FENFLURAMINE
     Indication: Epilepsy
     Dosage: 5.4 MILLILITER, 2X/DAY (BID) (23.7 MG/DAY)
  2. FENFLURAMINE [Suspect]
     Active Substance: FENFLURAMINE
     Dosage: 5.9 MILLILITER, 2X/DAY (BID)
  3. SABRIL [Concomitant]
     Active Substance: VIGABATRIN
     Indication: Seizure
     Dosage: 1000 MG QAM, 1500 MG QPM, 2X/DAY (BID)
  4. ONFI [Concomitant]
     Active Substance: CLOBAZAM
     Indication: Seizure
     Dosage: 15 MILLIGRAM, ONCE DAILY (QD), NIGHTLY
  5. CANNABIDIOL [Concomitant]
     Active Substance: CANNABIDIOL
     Indication: Product used for unknown indication
     Dosage: 730 MILLIGRAM, 2X/DAY (BID)

REACTIONS (1)
  - Parachute mitral valve [Not Recovered/Not Resolved]
